FAERS Safety Report 7739798-3 (Version None)
Quarter: 2011Q3

REPORT INFORMATION
  Report Type: 
  Country: None (occurrence: None)
  Receive Date: 20110909
  Receipt Date: 20110830
  Transmission Date: 20111222
  Serious: Yes (Hospitalization, Other)
  Sender: FDA-Public Use
  Company Number: US-BAYER-201037717NA

PATIENT
  Age: 25 Year
  Sex: Female
  Weight: 79 kg

DRUGS (3)
  1. LEVONORGESTREL + ETHINYL ESTRADIOL [Concomitant]
     Indication: CONTRACEPTION
     Dosage: UNK
     Dates: start: 20070101, end: 20080101
  2. YAZ [Suspect]
     Indication: ORAL CONTRACEPTION
     Dosage: UNK
     Dates: start: 20070401, end: 20070801
  3. YASMIN [Suspect]
     Indication: ORAL CONTRACEPTION
     Dosage: UNK
     Dates: start: 20070101

REACTIONS (17)
  - ABDOMINAL DISTENSION [None]
  - HAEMATOCHEZIA [None]
  - FATIGUE [None]
  - SOMNOLENCE [None]
  - BILIARY DYSKINESIA [None]
  - GALLBLADDER PAIN [None]
  - ABDOMINAL TENDERNESS [None]
  - POLYDIPSIA [None]
  - GALLBLADDER DISORDER [None]
  - DYSPEPSIA [None]
  - RECTAL HAEMORRHAGE [None]
  - POLYURIA [None]
  - PAIN [None]
  - INJURY [None]
  - ABDOMINAL PAIN [None]
  - ASTHENIA [None]
  - NAUSEA [None]
